FAERS Safety Report 8106985-4 (Version None)
Quarter: 2012Q1

REPORT INFORMATION
  Report Type: 
  Country: None (occurrence: None)
  Receive Date: 20120202
  Receipt Date: 20120202
  Transmission Date: 20120608
  Serious: Yes (Other)
  Sender: FDA-Public Use
  Company Number: None

PATIENT
  Age: 60 Year
  Sex: Female

DRUGS (1)
  1. ATELVIA [Suspect]
     Indication: OSTEOPOROSIS PROPHYLAXIS
     Route: 048
     Dates: start: 20111207, end: 20120120

REACTIONS (5)
  - ABDOMINAL PAIN UPPER [None]
  - GASTRITIS [None]
  - PAIN IN EXTREMITY [None]
  - BACK PAIN [None]
  - MUSCLE SPASMS [None]
